FAERS Safety Report 5075195-X (Version None)
Quarter: 2006Q3

REPORT INFORMATION
  Report Type: 
  Country: None (occurrence: None)
  Receive Date: 20060803
  Receipt Date: 20060803
  Transmission Date: 20061208
  Serious: No
  Sender: FDA-Public Use
  Company Number: None

PATIENT
  Age: 14 Year
  Sex: Female
  Weight: 95 kg

DRUGS (1)
  1. QUETIAPINE FUMARATE [Suspect]
     Dosage: 25 MG QD PO
     Route: 048

REACTIONS (2)
  - INCREASED APPETITE [None]
  - VISION BLURRED [None]
